FAERS Safety Report 16539626 (Version 5)
Quarter: 2020Q1

REPORT INFORMATION
  Report Type: Report from Study
  Country: CO (occurrence: CO)
  Receive Date: 20190708
  Receipt Date: 20200204
  Transmission Date: 20200409
  Serious: Yes (Hospitalization, Disabling, Other)
  Sender: FDA-Public Use
  Company Number: CO-SHIRE-CO201908694

PATIENT

DRUGS (7)
  1. KIOVIG [Suspect]
     Active Substance: HUMAN IMMUNOGLOBULIN G
     Indication: PRIMARY IMMUNODEFICIENCY SYNDROME
     Dosage: 120 GRAM VIAL, 1X A MONTH
     Route: 042
     Dates: start: 20100817
  2. KIOVIG [Suspect]
     Active Substance: HUMAN IMMUNOGLOBULIN G
     Dosage: 8 VIALS, 1X A MONTH
     Route: 042
     Dates: start: 20100817
  3. DEFLAZACORT [Concomitant]
     Active Substance: DEFLAZACORT
     Indication: PRIMARY IMMUNODEFICIENCY SYNDROME
  4. MYCOPHENOLATE [Concomitant]
     Active Substance: MYCOPHENOLIC ACID
     Indication: PRIMARY IMMUNODEFICIENCY SYNDROME
  5. KIOVIG [Suspect]
     Active Substance: HUMAN IMMUNOGLOBULIN G
     Dosage: 5 GRAM, 8 VIAL 1X/DAY:QD FOR 3 DAYS
     Route: 042
  6. KIOVIG [Suspect]
     Active Substance: HUMAN IMMUNOGLOBULIN G
     Dosage: 100 MILLIGRAM PER MILLILITRE, THREE FOLLOWING DAYS IN ONE MONTH
     Route: 065
     Dates: start: 20100817
  7. CALCIUM [Concomitant]
     Active Substance: CALCIUM
     Indication: PRIMARY IMMUNODEFICIENCY SYNDROME

REACTIONS (14)
  - Psychiatric symptom [Recovered/Resolved]
  - Product availability issue [Unknown]
  - Myalgia [Recovering/Resolving]
  - Syncope [Recovered/Resolved]
  - Nausea [Recovered/Resolved]
  - Headache [Recovering/Resolving]
  - Vomiting [Recovered/Resolved]
  - Malaise [Recovering/Resolving]
  - Pharyngitis [Recovered/Resolved]
  - Asthenia [Recovered/Resolved]
  - Infusion related reaction [Recovering/Resolving]
  - Pyrexia [Recovered/Resolved]
  - Weight decreased [Not Recovered/Not Resolved]
  - Inappropriate schedule of product administration [Unknown]

NARRATIVE: CASE EVENT DATE: 20190310
